FAERS Safety Report 5958117-6 (Version None)
Quarter: 2008Q4

REPORT INFORMATION
  Report Type: 
  Country: None (occurrence: None)
  Receive Date: 20081119
  Receipt Date: 20081117
  Transmission Date: 20090506
  Serious: Yes (Hospitalization)
  Sender: FDA-Public Use
  Company Number: FR-BRISTOL-MYERS SQUIBB COMPANY-14410187

PATIENT
  Age: 49 Year
  Sex: Male

DRUGS (1)
  1. REYATAZ [Suspect]
     Route: 048

REACTIONS (2)
  - NEPHROLITHIASIS [None]
  - RENAL FAILURE ACUTE [None]
